FAERS Safety Report 9254237 (Version 2)
Quarter: 2014Q2

REPORT INFORMATION
  Report Type: Report from Study
  Country: CN (occurrence: CN)
  Receive Date: 20130425
  Receipt Date: 20140515
  Transmission Date: 20141212
  Serious: No
  Sender: FDA-Public Use
  Company Number: PHHY2013CN031012

PATIENT
  Age: 4 Year
  Sex: Female

DRUGS (2)
  1. ICL670A [Suspect]
     Indication: IRON OVERLOAD
     Dosage: 500 MG, QD
     Route: 048
     Dates: start: 20120914
  2. ICL670A [Suspect]
     Dosage: 312.5 MG, QD
     Route: 048
     Dates: start: 20130320, end: 20130424

REACTIONS (4)
  - Heart rate increased [Unknown]
  - Arrhythmia [Unknown]
  - Alanine aminotransferase increased [Recovered/Resolved]
  - Aspartate aminotransferase increased [Recovered/Resolved]
